FAERS Safety Report 9076654 (Version 2)
Quarter: 2013Q1

REPORT INFORMATION
  Report Type: Spontaneous
  Country: JP (occurrence: JP)
  Receive Date: 20130130
  Receipt Date: 20130308
  Transmission Date: 20140127
  Serious: Yes (Other)
  Sender: FDA-Public Use
  Company Number: PHHY2013JP008074

PATIENT
  Age: 72 Year
  Sex: Female

DRUGS (1)
  1. ZOMETA [Suspect]
     Indication: METASTASES TO BONE
     Dosage: 4 MG, DAILY
     Route: 041
     Dates: start: 20100222, end: 20130108

REACTIONS (9)
  - Osteonecrosis of jaw [Unknown]
  - Lymph node pain [Unknown]
  - Bone lesion [Unknown]
  - Exposed bone in jaw [Unknown]
  - Osteomyelitis [Unknown]
  - Soft tissue infection [Unknown]
  - Pain [Unknown]
  - Erythema [Unknown]
  - Swelling [Unknown]
